FAERS Safety Report 8027745-9 (Version None)
Quarter: 2011Q4

REPORT INFORMATION
  Report Type: 
  Country: None (occurrence: None)
  Receive Date: 20111130
  Receipt Date: 20110620
  Transmission Date: 20120403
  Serious: Yes (Hospitalization, Other)
  Sender: FDA-Public Use
  Company Number: US201003000201

PATIENT
  Age: 67 Year
  Sex: Male
  Weight: 86.6 kg

DRUGS (8)
  1. BYETTA [Suspect]
     Dates: start: 20051208, end: 20060225
  2. ZETIA [Concomitant]
  3. SPIRIVA [Concomitant]
  4. EXENATIDE, DISPOSABLE DEVICE (EXENATIDE PEN ) PEN,DISPOSABLE [Concomitant]
  5. ALTACE [Concomitant]
  6. MECLIZINE [Concomitant]
  7. NEXIUM [Concomitant]
  8. ASPIRIN [Concomitant]

REACTIONS (3)
  - RENAL FAILURE [None]
  - PANCREATITIS ACUTE [None]
  - PANCREATITIS RELAPSING [None]
